APPROVED DRUG PRODUCT: TRAMADOL HYDROCHLORIDE AND ACETAMINOPHEN
Active Ingredient: ACETAMINOPHEN; TRAMADOL HYDROCHLORIDE
Strength: 325MG;37.5MG
Dosage Form/Route: TABLET;ORAL
Application: A090460 | Product #001 | TE Code: AB
Applicant: ZYDUS PHARMACEUTICALS USA INC
Approved: Sep 6, 2012 | RLD: No | RS: No | Type: RX